FAERS Safety Report 9346076 (Version 1)
Quarter: 2013Q2

REPORT INFORMATION
  Report Type: Spontaneous
  Country: IT (occurrence: DE)
  Receive Date: 20130613
  Receipt Date: 20130613
  Transmission Date: 20140414
  Serious: Yes (Other)
  Sender: FDA-Public Use
  Company Number: DE-FRI-1000045860

PATIENT
  Age: 75 Year
  Sex: Female
  Weight: 85 kg

DRUGS (6)
  1. FOSFOMYCIN [Suspect]
     Indication: URINARY TRACT INFECTION
     Dosage: 3000 MG
     Route: 048
     Dates: start: 20130111, end: 20130111
  2. THYROXIN [Concomitant]
     Dosage: 75
     Dates: start: 2007
  3. RANITIDIN [Concomitant]
     Dosage: 300
     Dates: start: 2007
  4. BISOPROLOL FUMARATE [Concomitant]
     Dosage: 5
     Dates: start: 2007
  5. ESTRING [Concomitant]
     Dates: start: 2007
  6. FLUVASTATINE [Concomitant]
     Dosage: 40
     Dates: start: 2007

REACTIONS (4)
  - Palpitations [Recovered/Resolved]
  - Generalised erythema [Recovered/Resolved]
  - Pruritus [Recovered/Resolved]
  - Vomiting [Recovered/Resolved]
